FAERS Safety Report 6919919-2 (Version None)
Quarter: 2010Q3

REPORT INFORMATION
  Report Type: 
  Country: None (occurrence: None)
  Receive Date: 20100811
  Receipt Date: 20100728
  Transmission Date: 20110219
  Serious: Yes (Other)
  Sender: FDA-Public Use
  Company Number: PHHY2010US40917

PATIENT
  Sex: Female

DRUGS (3)
  1. ZOMETA [Suspect]
     Dosage: UNK
     Route: 042
     Dates: start: 20091204
  2. ZOMETA [Suspect]
     Dosage: UNK
     Dates: start: 20100514
  3. ZOMETA [Suspect]
     Dosage: UNK
     Dates: start: 20100624

REACTIONS (4)
  - LIVER FUNCTION TEST ABNORMAL [None]
  - RENAL FAILURE ACUTE [None]
  - STREPTOCOCCAL SEPSIS [None]
  - STREPTOCOCCUS TEST POSITIVE [None]
